FAERS Safety Report 5464407-6 (Version None)
Quarter: 2007Q3

REPORT INFORMATION
  Report Type: 
  Country: None (occurrence: None)
  Receive Date: 20070921
  Receipt Date: 20070910
  Transmission Date: 20080115
  Serious: Yes (Other)
  Sender: FDA-Public Use
  Company Number: US-ROCHE-513197

PATIENT
  Sex: Male

DRUGS (7)
  1. SAQUINAVIR [Suspect]
     Indication: DRUG USE FOR UNKNOWN INDICATION
  2. NELFINAVIR [Suspect]
     Indication: DRUG USE FOR UNKNOWN INDICATION
     Dosage: POSSIBLY ADMINISTERED
  3. 3TC [Suspect]
     Indication: DRUG USE FOR UNKNOWN INDICATION
  4. AZT [Suspect]
     Indication: DRUG USE FOR UNKNOWN INDICATION
  5. ATAZANAVIR SULFATE [Suspect]
     Indication: DRUG USE FOR UNKNOWN INDICATION
  6. ANTIBIOTIC NOS [Concomitant]
  7. ALCOHOL [Concomitant]
     Dosage: DURING PREGNANCY

REACTIONS (2)
  - HEPATOMEGALY [None]
  - HYDROCELE [None]
